FAERS Safety Report 7118676-7 (Version None)
Quarter: 2010Q4

REPORT INFORMATION
  Report Type: 
  Country: None (occurrence: None)
  Receive Date: 20101123
  Receipt Date: 20101112
  Transmission Date: 20110411
  Serious: No
  Sender: FDA-Public Use
  Company Number: KR-JNJFOC-20101105995

PATIENT
  Sex: Female

DRUGS (1)
  1. DURAGESIC-100 [Suspect]
     Indication: ARTHRALGIA
     Dosage: HALF A PATCH OF 12.5UG/HR
     Route: 062

REACTIONS (3)
  - ARTHRALGIA [None]
  - FEELING COLD [None]
  - WRONG TECHNIQUE IN DRUG USAGE PROCESS [None]
